FAERS Safety Report 7930002-X (Version None)
Quarter: 2011Q4

REPORT INFORMATION
  Report Type: 
  Country: None (occurrence: None)
  Receive Date: 20111117
  Receipt Date: 20111109
  Transmission Date: 20120403
  Serious: No
  Sender: FDA-Public Use
  Company Number: 2011SP052820

PATIENT
  Age: 50 Year
  Sex: Male

DRUGS (1)
  1. SAPHRIS [Suspect]
     Indication: PRODUCT USED FOR UNKNOWN INDICATION
     Dosage: 5 MG;HS;SL
     Route: 060

REACTIONS (4)
  - SKIN LESION [None]
  - DRUG HYPERSENSITIVITY [None]
  - RASH [None]
  - WHEEZING [None]
